FAERS Safety Report 22202377 (Version 2)
Quarter: 2023Q2

REPORT INFORMATION
  Report Type: Spontaneous
  Country: JP (occurrence: JP)
  Receive Date: 20230412
  Receipt Date: 20230418
  Transmission Date: 20230721
  Serious: Yes (Other)
  Sender: FDA-Public Use
  Company Number: JP-PFIZER INC-PV202300063318

PATIENT
  Age: 13 Year
  Sex: Male

DRUGS (8)
  1. OXALIPLATIN [Suspect]
     Active Substance: OXALIPLATIN
     Indication: Colorectal cancer
     Dosage: UNK UNK, CYCLIC, BEGINING EVERY 2 WEEKS
  2. OXALIPLATIN [Suspect]
     Active Substance: OXALIPLATIN
     Dosage: UNK UNK, CYCLIC, EVERY 4 WEEKS MIDDLE OF COURSE
  3. LEUCOVORIN CALCIUM [Suspect]
     Active Substance: LEUCOVORIN CALCIUM
     Indication: Colorectal cancer
     Dosage: UNK UNK, CYCLIC, BEGINING EVERY 2 WEEKS
  4. LEUCOVORIN CALCIUM [Suspect]
     Active Substance: LEUCOVORIN CALCIUM
     Dosage: UNK UNK, CYCLIC, EVERY 4 WEEKS MIDDLE OF COURSE
  5. FLUOROURACIL [Suspect]
     Active Substance: FLUOROURACIL
     Indication: Colorectal cancer
     Dosage: UNK UNK, CYCLIC, BEGINING EVERY 2 WEEKS
  6. FLUOROURACIL [Suspect]
     Active Substance: FLUOROURACIL
     Dosage: UNK UNK, CYCLIC, EVERY 4 WEEKS MIDDLE OF COURSE
  7. PANITUMUMAB [Suspect]
     Active Substance: PANITUMUMAB
     Indication: Colorectal cancer
     Dosage: UNK UNK, CYCLIC, BEGINING EVERY 2 WEEKS
  8. PANITUMUMAB [Suspect]
     Active Substance: PANITUMUMAB
     Dosage: UNK UNK, CYCLIC, EVERY 4 WEEKS MIDDLE OF COURSE

REACTIONS (3)
  - Neutropenia [Unknown]
  - Stomatitis [Unknown]
  - Bacterial infection [Unknown]
